FAERS Safety Report 18400860 (Version 2)
Quarter: 2020Q4

REPORT INFORMATION
  Report Type: Spontaneous
  Country: AT (occurrence: AT)
  Receive Date: 20201019
  Receipt Date: 20201029
  Transmission Date: 20210114
  Serious: Yes (Other)
  Sender: FDA-Public Use
  Company Number: AT-UCBSA-2020041491

PATIENT
  Age: 55 Year
  Sex: Male

DRUGS (6)
  1. ROTIGOTINE [Suspect]
     Active Substance: ROTIGOTINE
     Indication: MULTIPLE SYSTEM ATROPHY
     Dosage: 8 GRAM PER DAY
     Route: 062
  2. RASAGILINE. [Concomitant]
     Active Substance: RASAGILINE
     Indication: MULTIPLE SYSTEM ATROPHY
     Dosage: UNKNOWN DOSE
  3. TRAZODONE [Concomitant]
     Active Substance: TRAZODONE HYDROCHLORIDE
     Indication: RAPID EYE MOVEMENT SLEEP BEHAVIOUR DISORDER
     Dosage: 150 MILLIGRAM PER DAY
  4. ROTIGOTINE [Suspect]
     Active Substance: ROTIGOTINE
     Indication: OFF LABEL USE
  5. CARBIDOPA;ENTACAPONE;LEVODOPA [Suspect]
     Active Substance: CARBIDOPA\ENTACAPONE\LEVODOPA
     Indication: MULTIPLE SYSTEM ATROPHY
     Dosage: DOSING AS A PART OF LEVODOPA EQUIVALENT DAILY DOSE (LEDD) OF 1479 MG WAS SCHEDULED.
  6. PRAMIPEXOLE. [Suspect]
     Active Substance: PRAMIPEXOLE
     Indication: MULTIPLE SYSTEM ATROPHY
     Dosage: DOSING AS A PART OF LEVODOPA EQUIVALENT DAILY DOSE (LEDD) OF 1479 MG WAS SCHEDULED.

REACTIONS (2)
  - Drug ineffective for unapproved indication [Unknown]
  - Off label use [Unknown]
